FAERS Safety Report 18047359 (Version 2)
Quarter: 2020Q3

REPORT INFORMATION
  Report Type: Spontaneous
  Country: IT (occurrence: IT)
  Receive Date: 20200721
  Receipt Date: 20200730
  Transmission Date: 20201103
  Serious: Yes (Other)
  Sender: FDA-Public Use
  Company Number: IT-AUROBINDO-AUR-APL-2020-035456

PATIENT
  Age: 49 Year
  Sex: Female

DRUGS (1)
  1. CEFIXIME FILM COATED TABLET [Suspect]
     Active Substance: CEFIXIME
     Indication: OROPHARYNGEAL PAIN
     Dosage: 1 DOSAGE FORM, TOTAL
     Route: 048
     Dates: start: 20200708, end: 20200708

REACTIONS (5)
  - Adverse drug reaction [Recovering/Resolving]
  - Urticaria [Recovering/Resolving]
  - Vomiting [Recovering/Resolving]
  - Throat irritation [Recovering/Resolving]
  - Diarrhoea [Recovering/Resolving]

NARRATIVE: CASE EVENT DATE: 20200708
